FAERS Safety Report 4896640-6 (Version None)
Quarter: 2006Q1

REPORT INFORMATION
  Report Type: 
  Country: None (occurrence: None)
  Receive Date: 20060131
  Receipt Date: 20060103
  Transmission Date: 20060701
  Serious: Yes (Disabling)
  Sender: FDA-Public Use
  Company Number: US-ROCHE-430563

PATIENT
  Age: 19 Year
  Sex: Male

DRUGS (3)
  1. NAPROSYN [Suspect]
     Dosage: TAKEN FOR ONE OR TWO DAYS.
     Route: 065
     Dates: start: 20050615, end: 20050615
  2. ALEVE [Suspect]
     Route: 048
     Dates: start: 20050615, end: 20050615
  3. ALEVE [Suspect]
     Dosage: THERAPY DURATION REPORTED AS 6 MONTHS IN TOTAL FROM FIRST START DATE TO LAST STOP DATE.
     Route: 048
     Dates: start: 20050615, end: 20051215

REACTIONS (4)
  - ARTHRALGIA [None]
  - DIFFICULTY IN WALKING [None]
  - IMPAIRED DRIVING ABILITY [None]
  - INFLAMMATION [None]
